FAERS Safety Report 20054838 (Version 2)
Quarter: 2021Q4

REPORT INFORMATION
  Report Type: Report from Study
  Country: US (occurrence: US)
  Receive Date: 20211110
  Receipt Date: 20211111
  Transmission Date: 20220303
  Serious: Yes (Hospitalization)
  Sender: FDA-Public Use
  Company Number: US-BAYER-2021A218876

PATIENT
  Sex: Female

DRUGS (1)
  1. STIVARGA [Suspect]
     Active Substance: REGORAFENIB
     Indication: Colorectal cancer
     Dosage: 160MG DAILY  3 WEEKS ON 1 WEEK OFF
     Route: 048
     Dates: start: 202108

REACTIONS (7)
  - Dyspepsia [None]
  - Skin disorder [Recovered/Resolved]
  - Fatigue [Recovered/Resolved]
  - Pre-existing condition improved [None]
  - Headache [Recovered/Resolved]
  - Skin exfoliation [Recovering/Resolving]
  - Hepatic enzyme increased [None]
